FAERS Safety Report 20076889 (Version 2)
Quarter: 2022Q1

REPORT INFORMATION
  Report Type: Spontaneous
  Country: US (occurrence: US)
  Receive Date: 20211116
  Receipt Date: 20220120
  Transmission Date: 20220423
  Serious: No
  Sender: FDA-Public Use
  Company Number: US-PFIZER INC-202101517217

PATIENT
  Age: 71 Year
  Sex: Female

DRUGS (3)
  1. PREMARIN [Suspect]
     Active Substance: ESTROGENS, CONJUGATED
     Dosage: UNK
  2. PREMARIN [Concomitant]
     Active Substance: ESTROGENS, CONJUGATED
     Indication: Hot flush
     Dosage: 0.45 MG, 1X/DAY (TAKE FOR 21 DAYS THEN DO NOT TAKE FOR 7 DAYS)
     Route: 048
     Dates: start: 20211222
  3. PREMARIN [Concomitant]
     Active Substance: ESTROGENS, CONJUGATED
     Indication: Menopause

REACTIONS (2)
  - Withdrawal syndrome [Unknown]
  - Mood altered [Unknown]
